FAERS Safety Report 14337424 (Version 1)
Quarter: 2017Q4

REPORT INFORMATION
  Report Type: Report from Study
  Country: DE (occurrence: DE)
  Receive Date: 20171229
  Receipt Date: 20171229
  Transmission Date: 20180321
  Serious: Yes (Hospitalization)
  Sender: FDA-Public Use
  Company Number: DE-PFIZER INC-2017552173

PATIENT
  Age: 67 Year
  Sex: Female
  Weight: 57 kg

DRUGS (13)
  1. IPRATROPIUMBROMID [Concomitant]
     Active Substance: IPRATROPIUM BROMIDE
     Indication: CHRONIC OBSTRUCTIVE PULMONARY DISEASE
     Dosage: 0.02 UG, UNK
     Route: 055
  2. CARBOPLATIN. [Suspect]
     Active Substance: CARBOPLATIN
     Indication: NON-SMALL CELL LUNG CANCER
     Dosage: 5MGXMIN/ML
     Dates: start: 20161028, end: 20170512
  3. FENOTEROL [Concomitant]
     Active Substance: FENOTEROL
     Indication: CHRONIC OBSTRUCTIVE PULMONARY DISEASE
     Dosage: 0.05 UG, UNK
     Route: 055
  4. NOVALGIN [Concomitant]
     Active Substance: METAMIZOLE SODIUM
     Indication: PROPHYLAXIS
     Dosage: 3 G, 1X/DAY
     Route: 065
     Dates: start: 201605
  5. PANTOPRAZOL HENNIG [Concomitant]
     Indication: PROPHYLAXIS
     Dosage: 40 MG, 1X/DAY
     Route: 065
     Dates: start: 201605
  6. IBUPROFEN. [Concomitant]
     Active Substance: IBUPROFEN
     Indication: PROPHYLAXIS
     Dosage: 1200 MG, 1X/DAY
     Route: 065
     Dates: start: 201605
  7. ABRAXANE [Suspect]
     Active Substance: PACLITAXEL
     Dosage: 85 MG/M2, UNK
     Route: 041
     Dates: start: 20161028, end: 20170526
  8. GLYCOPYRRONIUM [Concomitant]
     Active Substance: GLYCOPYRRONIUM
     Indication: CHRONIC OBSTRUCTIVE PULMONARY DISEASE
     Dosage: 43 UG, 1X/DAY
     Route: 055
  9. NALOXON [Concomitant]
     Active Substance: NALOXONE HYDROCHLORIDE
     Indication: PROPHYLAXIS
     Dosage: 20 MG, 1X/DAY
     Route: 065
     Dates: start: 2016
  10. LYRICA [Concomitant]
     Active Substance: PREGABALIN
     Indication: PROPHYLAXIS
     Dosage: 100 MG, 1X/DAY
     Route: 065
     Dates: start: 2016
  11. INDACATEROL [Concomitant]
     Active Substance: INDACATEROL
     Indication: CHRONIC OBSTRUCTIVE PULMONARY DISEASE
     Dosage: 85 UG, 1X/DAY
     Route: 055
  12. ABRAXANE [Suspect]
     Active Substance: PACLITAXEL
     Indication: NON-SMALL CELL LUNG CANCER
     Dosage: 85 MG/M2, UNK
     Route: 041
     Dates: start: 20161125
  13. SIRDALUD [Concomitant]
     Active Substance: TIZANIDINE
     Indication: PROPHYLAXIS
     Dosage: 2 MG, 1X/DAY
     Route: 065
     Dates: start: 201605

REACTIONS (3)
  - Gastroenteritis norovirus [Recovered/Resolved]
  - Pneumonia [Recovered/Resolved]
  - Nausea [Unknown]

NARRATIVE: CASE EVENT DATE: 20161214
